FAERS Safety Report 17490042 (Version 1)
Quarter: 2020Q1

REPORT INFORMATION
  Report Type: Spontaneous
  Country: US (occurrence: US)
  Receive Date: 20200303
  Receipt Date: 20200303
  Transmission Date: 20200409
  Serious: No
  Sender: FDA-Public Use
  Company Number: US-AKORN PHARMACEUTICALS-2019AKN02337

PATIENT
  Age: 18 Year
  Sex: Female

DRUGS (3)
  1. UNSPECIEED ORAL CONTRACEPTIVE [Concomitant]
  2. MYORISAN [Suspect]
     Active Substance: ISOTRETINOIN
     Indication: ACNE
     Dosage: 30 MG, 1X/DAY (20 MG IN THE AM)
     Route: 048
     Dates: start: 20190919, end: 20190926
  3. MYORISAN [Suspect]
     Active Substance: ISOTRETINOIN
     Indication: ACNE
     Dosage: 20 MG IN THE AM (30 MG IN THE EVENING)
     Route: 048
     Dates: start: 20190919, end: 20190926

REACTIONS (1)
  - Feeling abnormal [Recovered/Resolved]

NARRATIVE: CASE EVENT DATE: 201909
